FAERS Safety Report 9261873 (Version 2)
Quarter: 2013Q2

REPORT INFORMATION
  Report Type: Spontaneous
  Country: JP (occurrence: JP)
  Receive Date: 20130429
  Receipt Date: 20130429
  Transmission Date: 20140414
  Serious: Yes (Other)
  Sender: FDA-Public Use
  Company Number: JP-PFIZER INC-2013098327

PATIENT
  Age: 32 Year
  Sex: Female

DRUGS (8)
  1. JZOLOFT [Suspect]
     Dosage: 50 MG DAILY
     Route: 048
  2. JZOLOFT [Suspect]
     Dosage: 150 MG, 1X/DAY
     Route: 048
     Dates: start: 20130326, end: 20130326
  3. LAMICTAL [Suspect]
     Dosage: 100 MG DAILY
     Route: 048
  4. LAMICTAL [Suspect]
     Dosage: 400 MG, 1X/DAY
     Route: 048
     Dates: start: 20130326, end: 20130326
  5. ABILIFY [Suspect]
     Dosage: 3 MG DAILY
     Route: 048
  6. ABILIFY [Suspect]
     Dosage: 6 MG, 1X/DAY
     Route: 048
     Dates: start: 20130326, end: 20130326
  7. DEZOLAM [Suspect]
     Dosage: 0.5 MG DAILY
     Route: 048
  8. DEZOLAM [Suspect]
     Dosage: 5.5 MG, 1X/DAY
     Route: 048
     Dates: start: 20130326, end: 20130326

REACTIONS (3)
  - Intentional overdose [Recovered/Resolved]
  - Suicide attempt [Recovered/Resolved]
  - Intentional overdose [None]
